FAERS Safety Report 9107362 (Version 1)
Quarter: 2013Q1

REPORT INFORMATION
  Report Type: Spontaneous
  Country: CN (occurrence: CN)
  Receive Date: 20130221
  Receipt Date: 20130221
  Transmission Date: 20140127
  Serious: Yes (Other)
  Sender: FDA-Public Use
  Company Number: CN-JNJFOC-20130204820

PATIENT
  Sex: 0

DRUGS (2)
  1. INFLIXIMAB, RECOMBINANT [Suspect]
     Indication: ARTHRITIS
     Dosage: 0, 2 AND 6, 1 TIME RESPECTIVELY
     Route: 042
  2. INFLIXIMAB, RECOMBINANT [Suspect]
     Indication: ARTHRITIS
     Dosage: 0, 2 AND 6, 1 TIME RESPECTIVELY
     Route: 042

REACTIONS (1)
  - Tuberculosis [Recovered/Resolved]
